FAERS Safety Report 21566034 (Version 1)
Quarter: 2022Q4

REPORT INFORMATION
  Report Type: Report from Study
  Country: US (occurrence: US)
  Receive Date: 20221108
  Receipt Date: 20221108
  Transmission Date: 20230113
  Serious: No
  Sender: FDA-Public Use
  Company Number: US-002147023-NVSC2022US248795

PATIENT
  Sex: Female

DRUGS (1)
  1. KISQALI [Suspect]
     Active Substance: RIBOCICLIB
     Indication: Breast cancer
     Dosage: 600 MG, QD
     Route: 048
     Dates: start: 20221024

REACTIONS (8)
  - Hypoaesthesia [Unknown]
  - Paraesthesia [Unknown]
  - Neuralgia [Unknown]
  - Chest pain [Unknown]
  - Dysarthria [Unknown]
  - Tongue disorder [Unknown]
  - Migraine [Unknown]
  - Headache [Unknown]
